FAERS Safety Report 14430396 (Version 1)
Quarter: 2018Q1

REPORT INFORMATION
  Report Type: Report from Study
  Country: TR (occurrence: TR)
  Receive Date: 20180124
  Receipt Date: 20180124
  Transmission Date: 20180509
  Serious: Yes (Other)
  Sender: FDA-Public Use
  Company Number: TR-ROCHE-2056360

PATIENT

DRUGS (2)
  1. MYCOPHENOLATE MOFETIL. [Suspect]
     Active Substance: MYCOPHENOLATE MOFETIL
     Indication: NEPHROTIC SYNDROME
     Route: 065
  2. RITUXIMAB. [Suspect]
     Active Substance: RITUXIMAB
     Indication: NEPHROTIC SYNDROME
     Route: 042

REACTIONS (10)
  - Drug ineffective [Unknown]
  - Cataract [Unknown]
  - Hypertension [Unknown]
  - Peritonitis [Unknown]
  - Osteoporosis [Unknown]
  - Alopecia [Unknown]
  - Drug resistance [Unknown]
  - Hypertrichosis [Unknown]
  - Hypothyroidism [Unknown]
  - Embolism [Unknown]
